FAERS Safety Report 5734424-7 (Version None)
Quarter: 2008Q2

REPORT INFORMATION
  Report Type: 
  Country: None (occurrence: None)
  Receive Date: 20080512
  Receipt Date: 20080311
  Transmission Date: 20081010
  Serious: No
  Sender: FDA-Public Use
  Company Number: A0716262A

PATIENT
  Age: 70 Year
  Sex: Female

DRUGS (3)
  1. RELAFEN [Suspect]
     Indication: DRUG USE FOR UNKNOWN INDICATION
     Route: 048
  2. LEVOTHROID [Suspect]
     Indication: THYROID DISORDER
     Route: 048
  3. EXCEDRIN (MIGRAINE) [Suspect]
     Indication: MIGRAINE
     Dosage: 2TAB SINGLE DOSE
     Route: 048
     Dates: start: 20080121

REACTIONS (2)
  - VISION BLURRED [None]
  - VISUAL DISTURBANCE [None]
